FAERS Safety Report 21961511 (Version 2)
Quarter: 2023Q1

REPORT INFORMATION
  Report Type: Report from Study
  Country: CA (occurrence: CA)
  Receive Date: 20230207
  Receipt Date: 20230209
  Transmission Date: 20230417
  Serious: Yes (Other)
  Sender: FDA-Public Use
  Company Number: CA-JNJFOC-20220307617

PATIENT
  Age: 36 Year
  Sex: Female
  Weight: 63.560 kg

DRUGS (6)
  1. REMICADE [Suspect]
     Active Substance: INFLIXIMAB
     Indication: Crohn^s disease
     Dosage: THERAPY START DATE:02-JUN-2014
     Route: 041
     Dates: start: 20130131
  2. PRENATAL VITAMINS [ASCORBIC ACID;BIOTIN;MINERALS NOS;NICOTINIC ACID;RE [Concomitant]
     Indication: Product used for unknown indication
     Route: 048
  3. VITAMIN B12 [Concomitant]
     Active Substance: CYANOCOBALAMIN
     Indication: Product used for unknown indication
     Route: 065
  4. PROBIOTICS NOS [Concomitant]
     Active Substance: PROBIOTICS NOS
     Indication: Product used for unknown indication
     Route: 065
  5. FISH OIL [Concomitant]
     Active Substance: FISH OIL
     Indication: Product used for unknown indication
     Route: 065
  6. OMEPRAZOLE [Concomitant]
     Active Substance: OMEPRAZOLE
     Indication: Product used for unknown indication
     Route: 048

REACTIONS (11)
  - Postoperative wound infection [Recovered/Resolved]
  - Labour complication [Unknown]
  - Exposure during pregnancy [Recovered/Resolved]
  - Nasopharyngitis [Unknown]
  - Infertility [Unknown]
  - COVID-19 [Recovered/Resolved]
  - In vitro fertilisation [Unknown]
  - Malaise [Not Recovered/Not Resolved]
  - Respiratory tract congestion [Unknown]
  - Inflammation [Unknown]
  - Placental lake [Unknown]

NARRATIVE: CASE EVENT DATE: 20220101
